FAERS Safety Report 20554897 (Version 1)
Quarter: 2022Q1

REPORT INFORMATION
  Report Type: Report from Study
  Country: IN (occurrence: IN)
  Receive Date: 20220304
  Receipt Date: 20220304
  Transmission Date: 20220423
  Serious: Yes (Hospitalization)
  Sender: FDA-Public Use
  Company Number: IN-BRISTOL-MYERS SQUIBB COMPANY-BMS-2022-030668

PATIENT
  Age: 41 Year
  Sex: Male
  Weight: 45 kg

DRUGS (1)
  1. NIVOLUMAB [Suspect]
     Active Substance: NIVOLUMAB
     Indication: Squamous cell carcinoma of head and neck
     Dosage: 135 MILLIGRAM, Q2WK
     Route: 042
     Dates: start: 20211225

REACTIONS (4)
  - Back pain [Unknown]
  - Nodule [Unknown]
  - Pain in extremity [Unknown]
  - Peripheral swelling [Unknown]
